FAERS Safety Report 8311465-7 (Version None)
Quarter: 2012Q2

REPORT INFORMATION
  Report Type: 
  Country: None (occurrence: None)
  Receive Date: 20120425
  Receipt Date: 20120419
  Transmission Date: 20120825
  Serious: Yes (Other)
  Sender: FDA-Public Use
  Company Number: PHEH2012US006160

PATIENT
  Sex: Female

DRUGS (7)
  1. VITAMIN B-12 [Concomitant]
     Dosage: UNK
  2. METFORMIN HCL [Concomitant]
     Dosage: UNK
  3. OSTEO BI-FLEX [Concomitant]
     Dosage: UNK
  4. VITAMINS NOS [Concomitant]
     Dosage: UNK
  5. DIOVAN [Suspect]
     Dosage: 160 MG, QD
  6. DIOVAN [Suspect]
     Dosage: 160 MG, BID
  7. CELEBREX [Concomitant]
     Dosage: UNK

REACTIONS (5)
  - FEELING ABNORMAL [None]
  - ARTHRITIS [None]
  - HYPERTENSION [None]
  - APPETITE DISORDER [None]
  - DIABETES MELLITUS [None]
